FAERS Safety Report 5710324-3 (Version None)
Quarter: 2008Q2

REPORT INFORMATION
  Report Type: 
  Country: None (occurrence: None)
  Receive Date: 20080418
  Receipt Date: 20080408
  Transmission Date: 20081010
  Serious: Yes (Other)
  Sender: FDA-Public Use
  Company Number: CA-PFIZER INC-2008031242

PATIENT
  Age: 40 Year
  Sex: Female

DRUGS (2)
  1. CHAMPIX [Suspect]
     Route: 048
  2. INSULIN [Concomitant]

REACTIONS (2)
  - BLOOD GLUCOSE INCREASED [None]
  - VAGINAL INFECTION [None]
